FAERS Safety Report 7269979-7 (Version None)
Quarter: 2011Q1

REPORT INFORMATION
  Report Type: 
  Country: None (occurrence: None)
  Receive Date: 20110202
  Receipt Date: 20110124
  Transmission Date: 20110831
  Serious: Yes (Death, Hospitalization)
  Sender: FDA-Public Use
  Company Number: JP-ROCHE-747894

PATIENT
  Sex: Male
  Weight: 70 kg

DRUGS (7)
  1. FAMOTIDINE [Concomitant]
     Route: 048
     Dates: start: 20090827, end: 20101013
  2. PREDONINE [Concomitant]
     Route: 048
     Dates: start: 20090829, end: 20101013
  3. FELBINAC [Concomitant]
     Dosage: FORM REPORTED AS OINTMENT AND CREAM.
     Route: 003
     Dates: start: 20090813, end: 20101013
  4. ACTEMRA [Suspect]
     Indication: RHEUMATOID ARTHRITIS
     Route: 041
     Dates: start: 20100618, end: 20100907
  5. BROTIZOLAM [Concomitant]
     Route: 048
     Dates: start: 20090822, end: 20101013
  6. MELOXICAM [Concomitant]
     Route: 048
     Dates: start: 20100407, end: 20101013
  7. LOXONIN [Concomitant]
     Dosage: FORM:TAPE FREQUENCY: TWO PIECES A DAY
     Route: 061
     Dates: start: 20100331, end: 20101013

REACTIONS (2)
  - UPPER RESPIRATORY TRACT INFLAMMATION [None]
  - PNEUMONIA [None]
